FAERS Safety Report 9036355 (Version 1)
Quarter: 2013Q1

REPORT INFORMATION
  Report Type: Spontaneous
  Country: GB (occurrence: None)
  Receive Date: 20130114
  Receipt Date: 20130114
  Transmission Date: 20140127
  Serious: Yes (Other)
  Sender: FDA-Public Use
  Company Number: FK201300019

PATIENT
  Age: 68 Year
  Sex: Male

DRUGS (1)
  1. ONDANSETRON [Suspect]
     Indication: NAUSEA
     Route: 048
     Dates: start: 20120618, end: 20120618

REACTIONS (4)
  - Restlessness [None]
  - Muscle spasms [None]
  - Agitation [None]
  - Tremor [None]
